FAERS Safety Report 13682850 (Version 1)
Quarter: 2017Q2

REPORT INFORMATION
  Report Type: Spontaneous
  Country: NL (occurrence: NL)
  Receive Date: 20170623
  Receipt Date: 20170623
  Transmission Date: 20170830
  Serious: Yes (Hospitalization)
  Sender: FDA-Public Use
  Company Number: NL-PFIZER INC-2017269722

PATIENT
  Age: 75 Year
  Sex: Male
  Weight: 73 kg

DRUGS (12)
  1. MOVICOLON [Concomitant]
     Active Substance: POLYETHYLENE GLYCOL 3350\POTASSIUM CHLORIDE\SODIUM BICARBONATE\SODIUM CHLORIDE
     Route: 048
  2. NYSTATINE [Concomitant]
     Route: 048
  3. CLARITROMYCINE [Concomitant]
     Dosage: 500 MG, UNK
     Route: 048
  4. METOPROLOL TARTRATE. [Concomitant]
     Active Substance: METOPROLOL TARTRATE
     Dosage: UNK
     Route: 048
  5. LINEZOLID. [Suspect]
     Active Substance: LINEZOLID
     Indication: MYCOBACTERIAL INFECTION
     Dosage: 600 MG, 2X/DAY
     Route: 042
     Dates: start: 20170531, end: 20170606
  6. OXYCODON [Concomitant]
     Active Substance: OXYCODONE
     Route: 048
  7. INSULINE /01223401/ [Concomitant]
     Active Substance: INSULIN NOS
     Route: 042
  8. RANITIDINE HYDROCHLORIDE. [Concomitant]
     Active Substance: RANITIDINE HYDROCHLORIDE
     Route: 048
  9. PARACETAMOL [Concomitant]
     Active Substance: ACETAMINOPHEN
     Route: 048
  10. DALTEPARIN [Concomitant]
     Active Substance: DALTEPARIN
     Dosage: UNK
     Route: 042
  11. PREDNISOLON ^DLF^ [Concomitant]
     Active Substance: PREDNISOLONE
     Dosage: UNK
     Route: 048
  12. TACROLIMUS. [Concomitant]
     Active Substance: TACROLIMUS
     Route: 048

REACTIONS (7)
  - Myoclonus [Recovered/Resolved]
  - Metabolic encephalopathy [Recovered/Resolved]
  - Hyperkalaemia [Recovered/Resolved]
  - Renal failure [Recovered/Resolved]
  - Confusional state [Recovered/Resolved]
  - Hyponatraemia [Recovered/Resolved]
  - Dysarthria [Recovered/Resolved]

NARRATIVE: CASE EVENT DATE: 20170603
